FAERS Safety Report 4579615-6 (Version None)
Quarter: 2005Q1

REPORT INFORMATION
  Report Type: 
  Country: None (occurrence: None)
  Receive Date: 20050210
  Receipt Date: 20050127
  Transmission Date: 20050727
  Serious: Yes (Death)
  Sender: FDA-Public Use
  Company Number: 2005-BP-01574YA

PATIENT
  Age: 74 Year
  Sex: Male

DRUGS (5)
  1. OMIX (TAMSULOSIN HYDROCHLORIDE) (TAMSULOSIN) [Suspect]
     Dosage: 0.4 MG
  2. VISKEN [Suspect]
  3. AMARYL [Suspect]
  4. VIOXX [Suspect]
  5. METFORMIN HCL [Suspect]

REACTIONS (12)
  - ANOXIA [None]
  - ARRHYTHMIA [None]
  - CARDIAC ARREST [None]
  - COMA [None]
  - ELECTROENCEPHALOGRAM ABNORMAL [None]
  - GENERAL PHYSICAL HEALTH DETERIORATION [None]
  - LUNG DISORDER [None]
  - LUNG INFILTRATION [None]
  - NOSOCOMIAL INFECTION [None]
  - SEPSIS [None]
  - SUDDEN DEATH [None]
  - SUPERINFECTION LUNG [None]
